FAERS Safety Report 6600478-9 (Version None)
Quarter: 2010Q1

REPORT INFORMATION
  Report Type: 
  Country: None (occurrence: None)
  Receive Date: 20100223
  Receipt Date: 20100223
  Transmission Date: 20100710
  Serious: Yes (Life-Threatening, Hospitalization)
  Sender: FDA-Public Use
  Company Number: None

PATIENT
  Age: 37 Year
  Sex: Female
  Weight: 81.6475 kg

DRUGS (1)
  1. TOPIRAMATE [Suspect]
     Indication: MIGRAINE
     Dosage: 25 1 @ BED FOR 1 WEEK INCREASING PO
     Route: 048
     Dates: start: 20100126, end: 20100213

REACTIONS (6)
  - DEPRESSION [None]
  - DRUG INEFFECTIVE [None]
  - PERSONALITY CHANGE [None]
  - SELF-INJURIOUS IDEATION [None]
  - SOCIAL AVOIDANT BEHAVIOUR [None]
  - SUICIDE ATTEMPT [None]
